FAERS Safety Report 8334980-9 (Version None)
Quarter: 2012Q2

REPORT INFORMATION
  Report Type: 
  Country: None (occurrence: None)
  Receive Date: 20120503
  Receipt Date: 20100318
  Transmission Date: 20120825
  Serious: No
  Sender: FDA-Public Use
  Company Number: US-TEVA-2010001568

PATIENT
  Sex: Female

DRUGS (3)
  1. OPANA [Concomitant]
     Route: 048
  2. CYMBALTA [Concomitant]
     Route: 048
  3. NUVIGIL [Suspect]
     Route: 048

REACTIONS (1)
  - NAUSEA [None]
